FAERS Safety Report 21652760 (Version 1)
Quarter: 2022Q4

REPORT INFORMATION
  Report Type: Spontaneous
  Country: US (occurrence: US)
  Receive Date: 20221128
  Receipt Date: 20221128
  Transmission Date: 20230113
  Serious: No
  Sender: FDA-Public Use
  Company Number: US-BAYER-2022A157534

PATIENT
  Sex: Female

DRUGS (3)
  1. CIPRO [Suspect]
     Active Substance: CIPROFLOXACIN HYDROCHLORIDE
     Indication: Urinary tract infection
  2. LENVIMA [Concomitant]
     Active Substance: LENVATINIB
     Dosage: 10 MG, QD
     Dates: start: 20220719
  3. CLARITHROMYCIN [Concomitant]
     Active Substance: CLARITHROMYCIN

REACTIONS (3)
  - Abdominal pain [None]
  - Feeling abnormal [None]
  - Occupational physical problem [None]

NARRATIVE: CASE EVENT DATE: 20220911
